FAERS Safety Report 4824741-7 (Version None)
Quarter: 2005Q4

REPORT INFORMATION
  Report Type: 
  Country: None (occurrence: None)
  Receive Date: 20051014
  Receipt Date: 20050718
  Transmission Date: 20060501
  Serious: No
  Sender: FDA-Public Use
  Company Number: 2005SP001425

PATIENT
  Age: 73 Year
  Sex: Female
  Weight: 87.9978 kg

DRUGS (4)
  1. LUNESTA [Suspect]
     Indication: INSOMNIA
     Dosage: 2MG;HS; ORAL; 1 MG; HS; ORAL
     Route: 048
     Dates: start: 20050614, end: 20050601
  2. LUNESTA [Suspect]
     Indication: INSOMNIA
     Dosage: 2MG;HS; ORAL; 1 MG; HS; ORAL
     Route: 048
     Dates: start: 20050601, end: 20050621
  3. ... [Concomitant]
  4. ASPIRIN [Concomitant]

REACTIONS (4)
  - DRUG INEFFECTIVE [None]
  - INSOMNIA [None]
  - URINARY INCONTINENCE [None]
  - VAGINAL BURNING SENSATION [None]
